FAERS Safety Report 5052591-8 (Version None)
Quarter: 2006Q3

REPORT INFORMATION
  Report Type: 
  Country: None (occurrence: None)
  Receive Date: 20060717
  Receipt Date: 20060613
  Transmission Date: 20061208
  Serious: Yes (Death)
  Sender: FDA-Public Use
  Company Number: BE-GLAXOSMITHKLINE-B0427745A

PATIENT
  Age: 61 Year
  Sex: Male
  Weight: 85 kg

DRUGS (12)
  1. AUGMENTIN '125' [Suspect]
     Dosage: 1G FOUR TIMES PER DAY
     Route: 042
     Dates: start: 20060603, end: 20060603
  2. NOVORAPID [Concomitant]
  3. LANTUS [Concomitant]
     Dosage: 54IU24 PER DAY
  4. GLUCOPHAGE [Concomitant]
     Dosage: 850MG TWICE PER DAY
  5. PLAVIX [Concomitant]
  6. APROVEL [Concomitant]
  7. LIPITOR [Concomitant]
  8. HYTRIN [Concomitant]
  9. EMCONCOR [Concomitant]
  10. DAKAR [Concomitant]
     Dosage: 15MG PER DAY
  11. XANAX [Concomitant]
     Dosage: .25MG SEE DOSAGE TEXT
  12. LASIX [Concomitant]

REACTIONS (10)
  - ANAPHYLACTIC SHOCK [None]
  - BRONCHOSPASM [None]
  - CARDIAC ARREST [None]
  - CHILLS [None]
  - CIRCULATORY COLLAPSE [None]
  - DIZZINESS [None]
  - HYPOTENSION [None]
  - MALAISE [None]
  - SEPTIC SHOCK [None]
  - VENTRICULAR FIBRILLATION [None]
